FAERS Safety Report 10195111 (Version 2)
Quarter: 2014Q2

REPORT INFORMATION
  Report Type: Spontaneous
  Country: CN (occurrence: CN)
  Receive Date: 20140526
  Receipt Date: 20140529
  Transmission Date: 20141212
  Serious: Yes (Other)
  Sender: FDA-Public Use
  Company Number: CN-ROCHE-1403756

PATIENT
  Age: 65 Year
  Sex: Male

DRUGS (2)
  1. XELODA [Suspect]
     Indication: COLON CANCER
     Dosage: DAY 1-14
     Route: 048
     Dates: start: 20130618
  2. OXALIPLATIN [Concomitant]
     Indication: COLON CANCER
     Dosage: DAY 1
     Route: 065
     Dates: start: 20130618

REACTIONS (4)
  - Syncope [Recovered/Resolved]
  - Gallbladder enlargement [Unknown]
  - Cholecystitis [Unknown]
  - Decreased appetite [Recovered/Resolved]
